FAERS Safety Report 23030279 (Version 2)
Quarter: 2023Q4

REPORT INFORMATION
  Report Type: Report from Study
  Country: FR (occurrence: FR)
  Receive Date: 20231005
  Receipt Date: 20231017
  Transmission Date: 20240110
  Serious: Yes (Hospitalization)
  Sender: FDA-Public Use
  Company Number: FR-ABBVIE-5433502

PATIENT
  Age: 76 Year
  Sex: Male

DRUGS (2)
  1. CARBIDOPA\LEVODOPA [Suspect]
     Active Substance: CARBIDOPA\LEVODOPA
     Indication: Parkinson^s disease
     Route: 050
     Dates: start: 20220830, end: 20230929
  2. CARBIDOPA\LEVODOPA [Suspect]
     Active Substance: CARBIDOPA\LEVODOPA
     Route: 050
     Dates: start: 20231013

REACTIONS (6)
  - Bradykinesia [Unknown]
  - Metabolic encephalopathy [Unknown]
  - Device breakage [Unknown]
  - Decreased activity [Unknown]
  - Persecutory delusion [Unknown]
  - Extubation [Unknown]

NARRATIVE: CASE EVENT DATE: 20230929
